FAERS Safety Report 19951696 (Version 1)
Quarter: 2021Q4

REPORT INFORMATION
  Report Type: Spontaneous
  Country: NL (occurrence: IT)
  Receive Date: 20211013
  Receipt Date: 20211013
  Transmission Date: 20220303
  Serious: Yes (Other)
  Sender: FDA-Public Use
  Company Number: IT-ROCHE-2926076

PATIENT
  Age: 11 Year
  Sex: Male

DRUGS (8)
  1. ROCURONIUM [Suspect]
     Active Substance: ROCURONIUM BROMIDE
     Indication: Appendicectomy
     Dosage: ROCURONIUM BROMIDE
     Route: 065
     Dates: start: 20210802, end: 20210802
  2. ACETAMINOPHEN [Suspect]
     Active Substance: ACETAMINOPHEN
     Indication: Appendicectomy
     Route: 065
     Dates: start: 20210802, end: 20210802
  3. CEFTRIAXONE [Suspect]
     Active Substance: CEFTRIAXONE
     Indication: Appendicectomy
     Route: 065
     Dates: start: 20210802, end: 20210802
  4. FENTANYL [Suspect]
     Active Substance: FENTANYL
     Indication: Appendicectomy
     Dosage: STRENGTH-01 MG/2ML
     Route: 042
     Dates: start: 20210802, end: 20210802
  5. PROPOFOL [Suspect]
     Active Substance: PROPOFOL
     Indication: Appendicectomy
     Route: 042
     Dates: start: 20210802, end: 20210802
  6. BETAMETHASONE [Suspect]
     Active Substance: BETAMETHASONE
     Indication: Appendicectomy
     Route: 065
  7. SUGAMMADEX SODIUM [Suspect]
     Active Substance: SUGAMMADEX SODIUM
     Indication: Appendicectomy
     Route: 065
     Dates: start: 20210802, end: 20210802
  8. MIDAZOLAM [Suspect]
     Active Substance: MIDAZOLAM
     Indication: Appendicectomy
     Route: 042
     Dates: start: 20210802, end: 20210802

REACTIONS (1)
  - Urticaria [Recovered/Resolved]

NARRATIVE: CASE EVENT DATE: 20210802
